FAERS Safety Report 7602042-1 (Version None)
Quarter: 2011Q3

REPORT INFORMATION
  Report Type: 
  Country: None (occurrence: None)
  Receive Date: 20110711
  Receipt Date: 20110706
  Transmission Date: 20111222
  Serious: Yes (Hospitalization, Other)
  Sender: FDA-Public Use
  Company Number: BR-PFIZER INC-2011146218

PATIENT
  Age: 63 Year
  Sex: Female
  Weight: 80 kg

DRUGS (8)
  1. LOVAZA [Concomitant]
     Indication: BLOOD CHOLESTEROL INCREASED
     Dosage: UNK
  2. OMEGA 6 TRIGLYCERIDES [Concomitant]
     Indication: BLOOD CHOLESTEROL INCREASED
     Dosage: UNK
  3. VARENICLINE TARTRATE [Suspect]
     Indication: SMOKING CESSATION THERAPY
     Dosage: 0.5 MG, 1X/DAY
     Route: 048
     Dates: start: 20110601, end: 20110101
  4. CLONAZEPAM [Concomitant]
     Indication: TACHYCARDIA
     Dosage: UNK
  5. PANTOPRAZOLE [Concomitant]
     Indication: GASTRITIS
     Dosage: UNK
  6. DIGEDRAT [Concomitant]
     Dosage: UNK
  7. AZULFIN [Concomitant]
     Dosage: UNK
  8. COUMADIN [Concomitant]
     Indication: PULMONARY EMBOLISM
     Dosage: UNK

REACTIONS (4)
  - TACHYCARDIA [None]
  - HAEMATOCHEZIA [None]
  - MALAISE [None]
  - GASTROINTESTINAL HAEMORRHAGE [None]
